FAERS Safety Report 7681611-7 (Version None)
Quarter: 2011Q3

REPORT INFORMATION
  Report Type: 
  Country: None (occurrence: None)
  Receive Date: 20110812
  Receipt Date: 20110803
  Transmission Date: 20111222
  Serious: Yes (Other)
  Sender: FDA-Public Use
  Company Number: CN-ASTRAZENECA-2011SE46137

PATIENT
  Age: 62 Year
  Sex: Male

DRUGS (5)
  1. LIDOCAINE [Suspect]
  2. LIDOCAINE [Suspect]
     Indication: EPIDURAL ANAESTHESIA
  3. ATROPINE [Concomitant]
  4. PHENOBARBITAL SODIUM 100MG CAP [Concomitant]
  5. LIDOCAINE [Suspect]
     Route: 008

REACTIONS (14)
  - HEADACHE [None]
  - CHOKING SENSATION [None]
  - ACCIDENTAL OVERDOSE [None]
  - CONVULSION [None]
  - DEPRESSION [None]
  - ANURIA [None]
  - DIZZINESS [None]
  - AGITATION [None]
  - CHEST DISCOMFORT [None]
  - BLOOD PRESSURE DECREASED [None]
  - CYANOSIS [None]
  - RESTLESSNESS [None]
  - DYSPNOEA [None]
  - LOSS OF CONSCIOUSNESS [None]
